FAERS Safety Report 8401688-0 (Version None)
Quarter: 2012Q2

REPORT INFORMATION
  Report Type: 
  Country: None (occurrence: None)
  Receive Date: 20120529
  Receipt Date: 20120516
  Transmission Date: 20120825
  Serious: Yes (Other)
  Sender: FDA-Public Use
  Company Number: CN-JNJFOC-20120502436

PATIENT
  Age: 83 Year
  Sex: Male

DRUGS (1)
  1. DECITABINE [Suspect]
     Indication: MYELODYSPLASTIC SYNDROME
     Dosage: 20 MG/M2, 1 IN 1 DAY, INTRAVENOUS DRIP
     Route: 041
     Dates: start: 20110301, end: 20110301

REACTIONS (1)
  - LUNG INFECTION [None]
